FAERS Safety Report 15036535 (Version 2)
Quarter: 2018Q3

REPORT INFORMATION
  Report Type: Report from Study
  Country: FR (occurrence: FR)
  Receive Date: 20180620
  Receipt Date: 20180719
  Transmission Date: 20181010
  Serious: Yes (Hospitalization, Other)
  Sender: FDA-Public Use
  Company Number: FR-PFIZER INC-2018244824

PATIENT
  Age: 80 Year
  Sex: Female
  Weight: 79.8 kg

DRUGS (13)
  1. FLUOROURACIL. [Suspect]
     Active Substance: FLUOROURACIL
     Dosage: 4390 MG, CYCLIC
     Route: 041
     Dates: start: 20150918
  2. IRINOTECAN HCL [Suspect]
     Active Substance: IRINOTECAN HYDROCHLORIDE
     Dosage: 320 MG, CYCLIC
     Route: 041
     Dates: start: 20150918
  3. VITAMIN D /00107901/ [Concomitant]
     Active Substance: ERGOCALCIFEROL
     Dates: start: 20151013, end: 20151113
  4. CALCIUM FOLINATE [Suspect]
     Active Substance: LEUCOVORIN CALCIUM
     Dosage: 320 MG, CYCLIC
     Route: 041
     Dates: start: 20150918
  5. VITAMIN K [Concomitant]
     Active Substance: PHYTONADIONE
     Dates: start: 20151013, end: 20151017
  6. IRINOTECAN HCL [Suspect]
     Active Substance: IRINOTECAN HYDROCHLORIDE
     Indication: COLORECTAL CANCER METASTATIC
     Dosage: 320 MG, CYCLIC
     Route: 041
     Dates: start: 20150904, end: 20150904
  7. FLUOROURACIL. [Suspect]
     Active Substance: FLUOROURACIL
     Dosage: 730 MG, CYCLIC
     Route: 040
     Dates: start: 20150918, end: 20150918
  8. FLUOROURACIL. [Suspect]
     Active Substance: FLUOROURACIL
     Indication: COLORECTAL CANCER METASTATIC
     Dosage: 730 MG, CYCLIC
     Route: 040
     Dates: start: 20150904, end: 20150904
  9. FLUOROURACIL. [Suspect]
     Active Substance: FLUOROURACIL
     Dosage: 4390 MG, CYCLIC
     Route: 041
     Dates: start: 20150904, end: 20150904
  10. CALCIUM FOLINATE [Suspect]
     Active Substance: LEUCOVORIN CALCIUM
     Indication: COLORECTAL CANCER METASTATIC
     Dosage: 320 MG, CYCLIC
     Route: 041
     Dates: start: 20150904, end: 20150904
  11. ZALTRAP [Suspect]
     Active Substance: ZIV-AFLIBERCEPT
     Indication: COLORECTAL CANCER METASTATIC
     Dosage: 320 MG, CYCLIC
     Route: 041
     Dates: start: 20150904, end: 20150904
  12. ZALTRAP [Suspect]
     Active Substance: ZIV-AFLIBERCEPT
     Dosage: 320 MG, CYCLIC
     Route: 041
     Dates: start: 20150918, end: 20150918
  13. ESOMEPRAZOLE [Concomitant]
     Active Substance: ESOMEPRAZOLE
     Indication: PROPHYLAXIS
     Dates: start: 20150918

REACTIONS (8)
  - Dehydration [Recovered/Resolved]
  - Vomiting [Recovered/Resolved]
  - Thrombosis in device [Recovered/Resolved]
  - Nausea [Recovered/Resolved]
  - General physical health deterioration [Recovered/Resolved]
  - Diarrhoea [Recovered/Resolved]
  - Gastroenteritis [Recovered/Resolved]
  - Diarrhoea [Recovered/Resolved]

NARRATIVE: CASE EVENT DATE: 20150918
